FAERS Safety Report 8360650-7 (Version None)
Quarter: 2012Q2

REPORT INFORMATION
  Report Type: 
  Country: None (occurrence: None)
  Receive Date: 20120515
  Receipt Date: 20120511
  Transmission Date: 20120825
  Serious: Yes (Hospitalization)
  Sender: FDA-Public Use
  Company Number: GB-SP-2012-01650

PATIENT
  Age: 55 Year
  Sex: Male

DRUGS (1)
  1. IMMUCYST [Suspect]
     Indication: PRODUCT USED FOR UNKNOWN INDICATION
     Route: 065
     Dates: end: 20120101

REACTIONS (5)
  - PYREXIA [None]
  - BOVINE TUBERCULOSIS [None]
  - INJURY [None]
  - TREMOR [None]
  - HICCUPS [None]
